FAERS Safety Report 4427727-X (Version None)
Quarter: 2004Q3

REPORT INFORMATION
  Report Type: 
  Country: None (occurrence: None)
  Receive Date: 20040812
  Receipt Date: 20040804
  Transmission Date: 20050211
  Serious: Yes (Hospitalization)
  Sender: FDA-Public Use
  Company Number: US-SHR-03-011422

PATIENT
  Age: 32 Year
  Sex: Female

DRUGS (5)
  1. BETASERON [Suspect]
     Indication: MULTIPLE SCLEROSIS
     Dosage: 8 MIU, EVERY 2D, SUBCUTANEOUS
     Route: 058
     Dates: start: 20030221
  2. BACLOFEN [Concomitant]
  3. CORTICOSTEROIDS [Concomitant]
  4. TRAZIDINE [Concomitant]
  5. PAIN MEDICATION (UNSPECIFIED) [Concomitant]

REACTIONS (6)
  - DYSPHAGIA [None]
  - MUSCLE SPASTICITY [None]
  - MYOCARDIAL INFARCTION [None]
  - SLEEP STUDY ABNORMAL [None]
  - SPEECH DISORDER [None]
  - VENTRICULAR DYSFUNCTION [None]
